FAERS Safety Report 5929429-7 (Version None)
Quarter: 2008Q4

REPORT INFORMATION
  Report Type: 
  Country: None (occurrence: None)
  Receive Date: 20081024
  Receipt Date: 20081015
  Transmission Date: 20090506
  Serious: Yes (Hospitalization)
  Sender: FDA-Public Use
  Company Number: GR-ROCHE-588993

PATIENT
  Sex: Female
  Weight: 84 kg

DRUGS (5)
  1. IBANDRONIC ACID [Suspect]
     Indication: BREAST CANCER METASTATIC
     Route: 042
     Dates: start: 20080611
  2. BEVACIZUMAB [Concomitant]
     Dates: start: 20071213, end: 20080611
  3. TRASTUZUMAB [Concomitant]
     Dates: start: 20071213, end: 20080611
  4. ONDANSETRON [Concomitant]
     Dates: start: 20071213
  5. PANTOPRAZOLE SODIUM [Concomitant]
     Dates: start: 20071213

REACTIONS (2)
  - DYSPNOEA [None]
  - PLEURAL EFFUSION [None]
